FAERS Safety Report 9528829 (Version 1)
Quarter: 2013Q3

REPORT INFORMATION
  Report Type: Spontaneous
  Country: US (occurrence: US)
  Receive Date: 20130917
  Receipt Date: 20130917
  Transmission Date: 20140515
  Serious: No
  Sender: FDA-Public Use
  Company Number: US-BANPHARM-20120090

PATIENT
  Age: 40 Year
  Sex: Male
  Weight: 79.54 kg

DRUGS (2)
  1. ZYRTEC LIQUID GELS 10 MG [Suspect]
     Indication: HYPERSENSITIVITY
     Dosage: 1 DF, QD,
     Route: 048
  2. MULTI VITAMINS [Concomitant]
     Dosage: 1X DAILY
     Route: 048

REACTIONS (1)
  - Drug ineffective [Unknown]
